FAERS Safety Report 9246881 (Version 2)
Quarter: 2013Q2

REPORT INFORMATION
  Report Type: Spontaneous
  Country: US (occurrence: US)
  Receive Date: 20130422
  Receipt Date: 20130508
  Transmission Date: 20140414
  Serious: Yes (Other)
  Sender: FDA-Public Use
  Company Number: US-PFIZER INC-2013115816

PATIENT
  Sex: Female

DRUGS (1)
  1. ROBITUSSIN PEAK COLD SUGAR FREE COUGH AND CHEST CONGESTION DM [Suspect]
     Dosage: UNK
     Dates: start: 201304

REACTIONS (1)
  - Blood glucose increased [Unknown]
